FAERS Safety Report 24009481 (Version 1)
Quarter: 2024Q2

REPORT INFORMATION
  Report Type: Spontaneous
  Country: CN (occurrence: CN)
  Receive Date: 20240625
  Receipt Date: 20240625
  Transmission Date: 20240716
  Serious: Yes (Death, Hospitalization, Other)
  Sender: FDA-Public Use
  Company Number: CN-SUN PHARMACEUTICAL INDUSTRIES LTD-2024R1-452411

PATIENT
  Age: 16 Year
  Sex: Male
  Weight: 46 kg

DRUGS (3)
  1. NOREPINEPHRINE [Suspect]
     Active Substance: NOREPINEPHRINE\NOREPINEPHRINE BITARTRATE
     Indication: Cardiac failure acute
     Dosage: UNK
     Route: 065
  2. LEVOSIMENDAN [Suspect]
     Active Substance: LEVOSIMENDAN
     Indication: Cardiac failure acute
     Dosage: UNK
     Route: 065
  3. THIAMINE HYDROCHLORIDE [Suspect]
     Active Substance: THIAMINE HYDROCHLORIDE
     Indication: Malnutrition
     Dosage: 300 MILLIGRAM, DAILY
     Route: 030

REACTIONS (3)
  - Respiratory failure [Fatal]
  - Circulatory collapse [Fatal]
  - Therapy non-responder [Fatal]
